FAERS Safety Report 25067942 (Version 1)
Quarter: 2025Q1

REPORT INFORMATION
  Report Type: Spontaneous
  Country: FR (occurrence: FR)
  Receive Date: 20250312
  Receipt Date: 20250312
  Transmission Date: 20250408
  Serious: Yes (Other)
  Sender: MYLAN
  Company Number: FR-MYLANLABS-2025M1018402

PATIENT
  Age: 18 Year
  Sex: Male

DRUGS (2)
  1. ETOPOSIDE [Suspect]
     Active Substance: ETOPOSIDE
     Indication: Medulloblastoma
     Dosage: 30 MILLIGRAM/SQ. METER, QD
  2. AXITINIB [Suspect]
     Active Substance: AXITINIB
     Indication: Medulloblastoma
     Dosage: 1.7 MILLIGRAM/SQ. METER, BID, 1.7 MG/M2/DOSE

REACTIONS (3)
  - Hypothyroidism [Unknown]
  - Off label use [Unknown]
  - Fatigue [Unknown]
